FAERS Safety Report 6896899-X (Version None)
Quarter: 2010Q3

REPORT INFORMATION
  Report Type: 
  Country: None (occurrence: None)
  Receive Date: 20100729
  Receipt Date: 20100714
  Transmission Date: 20110219
  Serious: Yes (Hospitalization)
  Sender: FDA-Public Use
  Company Number: DSA_43533_2010

PATIENT
  Age: 79 Year
  Sex: Female

DRUGS (6)
  1. ENALAPRIL MALEATE [Suspect]
     Indication: HYPERTENSION
     Dosage: (5 MG QD ORAL)
     Route: 048
     Dates: start: 20100101, end: 20100508
  2. SERTRALINE (SERTRALINE HCL) 100 MG [Suspect]
     Indication: DEPRESSION
     Dosage: (100 MG QD ORAL), (DF ORAL)
     Route: 048
     Dates: start: 20100101, end: 20100507
  3. SERTRALINE (SERTRALINE HCL) 100 MG [Suspect]
     Indication: DEPRESSION
     Dosage: (100 MG QD ORAL), (DF ORAL)
     Route: 048
     Dates: start: 20100508
  4. ASPIRIN [Concomitant]
  5. TRAVATAN [Concomitant]
  6. PROPAFENONE [Concomitant]

REACTIONS (3)
  - CYANOSIS [None]
  - HYPOTENSION [None]
  - LOSS OF CONSCIOUSNESS [None]
